FAERS Safety Report 25833285 (Version 1)
Quarter: 2025Q3

REPORT INFORMATION
  Report Type: Spontaneous
  Country: US (occurrence: US)
  Receive Date: 20250922
  Receipt Date: 20250922
  Transmission Date: 20251021
  Serious: Yes (Life-Threatening)
  Sender: MALLINCKRODT
  Company Number: US-MALLINCKRODT-MNK202505798

PATIENT
  Age: 52 Year
  Sex: Female

DRUGS (2)
  1. NITRIC OXIDE [Suspect]
     Active Substance: NITRIC OXIDE
     Indication: Hypoxia
     Route: 055
     Dates: start: 20250912
  2. NITRIC OXIDE [Suspect]
     Active Substance: NITRIC OXIDE
     Indication: Acute respiratory distress syndrome

REACTIONS (3)
  - Oxygen saturation decreased [Recovered/Resolved]
  - Device connection issue [Recovered/Resolved]
  - Product use in unapproved indication [Unknown]

NARRATIVE: CASE EVENT DATE: 20250912
